FAERS Safety Report 6143209-1 (Version None)
Quarter: 2009Q2

REPORT INFORMATION
  Report Type: 
  Country: None (occurrence: None)
  Receive Date: 20090403
  Receipt Date: 20090324
  Transmission Date: 20091009
  Serious: Yes (Hospitalization, Other)
  Sender: FDA-Public Use
  Company Number: AU-PFIZER INC-2009183318

PATIENT

DRUGS (2)
  1. CHAMPIX [Suspect]
     Dosage: UNK
     Dates: start: 20090304
  2. MICARDIS [Concomitant]
     Dosage: UNK

REACTIONS (2)
  - HYPERGLYCAEMIA [None]
  - UPPER RESPIRATORY TRACT INFECTION [None]
